FAERS Safety Report 4655420-7 (Version None)
Quarter: 2005Q2

REPORT INFORMATION
  Report Type: 
  Country: None (occurrence: None)
  Receive Date: 20050505
  Receipt Date: 20050415
  Transmission Date: 20051028
  Serious: Yes (Hospitalization)
  Sender: FDA-Public Use
  Company Number: USA020414151

PATIENT
  Age: 8 Year
  Sex: Male
  Weight: 33 kg

DRUGS (1)
  1. HUMATROPE [Suspect]
     Indication: DWARFISM
     Dosage: 1.8 MG DAY
     Dates: start: 20020101

REACTIONS (18)
  - COLITIS ULCERATIVE [None]
  - COLONIC HAEMORRHAGE [None]
  - DEHYDRATION [None]
  - DRUG ADMINISTRATION ERROR [None]
  - HAIR TEXTURE ABNORMAL [None]
  - HEADACHE [None]
  - INJECTION SITE HAEMORRHAGE [None]
  - INJECTION SITE MASS [None]
  - MIOSIS [None]
  - PALLOR [None]
  - PHARMACEUTICAL PRODUCT COMPLAINT [None]
  - POOR QUALITY DRUG ADMINISTERED [None]
  - RECTAL HAEMORRHAGE [None]
  - SKIN ODOUR ABNORMAL [None]
  - SWELLING FACE [None]
  - URTICARIA [None]
  - WEIGHT INCREASED [None]
  - WRONG TECHNIQUE IN DRUG USAGE PROCESS [None]
